FAERS Safety Report 5363606-1 (Version None)
Quarter: 2007Q2

REPORT INFORMATION
  Report Type: 
  Country: None (occurrence: None)
  Receive Date: 20070620
  Receipt Date: 20070619
  Transmission Date: 20071010
  Serious: Yes (Hospitalization)
  Sender: FDA-Public Use
  Company Number: B0475431A

PATIENT
  Age: 40 Year
  Sex: Female

DRUGS (3)
  1. MALARONE [Suspect]
     Indication: MALARIA PROPHYLAXIS
     Dosage: 1TAB PER DAY
     Route: 048
     Dates: start: 20061208, end: 20061218
  2. AUGMENTIN '125' [Suspect]
     Route: 048
     Dates: start: 20061215, end: 20061218
  3. TELITHROMYCIN [Concomitant]
     Route: 065
     Dates: start: 20061218

REACTIONS (18)
  - BLOOD IMMUNOGLOBULIN E INCREASED [None]
  - C-REACTIVE PROTEIN INCREASED [None]
  - CHEST X-RAY ABNORMAL [None]
  - COUGH [None]
  - DYSPNOEA [None]
  - EOSINOPHIL PERCENTAGE ABNORMAL [None]
  - FATIGUE [None]
  - HYPERSENSITIVITY [None]
  - HYPERTHERMIA [None]
  - HYPOXIA [None]
  - MALAISE [None]
  - PRURITUS [None]
  - PULMONARY EOSINOPHILIA [None]
  - PULMONARY VASCULITIS [None]
  - RALES [None]
  - RESPIRATORY DISTRESS [None]
  - TACHYPNOEA [None]
  - URTICARIA [None]
